FAERS Safety Report 18224792 (Version 1)
Quarter: 2020Q3

REPORT INFORMATION
  Report Type: Other
  Country: PK (occurrence: PK)
  Receive Date: 20200903
  Receipt Date: 20200903
  Transmission Date: 20201104
  Serious: Yes (Hospitalization, Other)
  Sender: FDA-Public Use
  Company Number: PK-DEXPHARM-20200771

PATIENT
  Age: 42 Year
  Sex: Male

DRUGS (17)
  1. SEVELAMER [Suspect]
     Active Substance: SEVELAMER
     Indication: HYPERPHOSPHATAEMIA
     Dosage: 800 MG THRICE DAILY. 7.6 MG/DL
  2. TOPIRAMATE. [Concomitant]
     Active Substance: TOPIRAMATE
  3. MONTELUKAST [Concomitant]
     Active Substance: MONTELUKAST SODIUM
  4. EZETIMIBE. [Concomitant]
     Active Substance: EZETIMIBE
  5. CARVEDILOL. [Concomitant]
     Active Substance: CARVEDILOL
     Dosage: 12.5 MG
  6. CHOLECALCIFEROL [Concomitant]
     Active Substance: CHOLECALCIFEROL
  7. DULAGLUTIDE. [Concomitant]
     Active Substance: DULAGLUTIDE
     Dosage: 1.5 MG/0.5 ML ONCE WEEKLY
     Route: 058
  8. LEVETIRACETAM. [Interacting]
     Active Substance: LEVETIRACETAM
     Dosage: LEVETIRACETAM 1000 MG TWICE DAILY
  9. LISINOPRIL. [Concomitant]
     Active Substance: LISINOPRIL
  10. DIPHENHYDRAMINE. [Concomitant]
     Active Substance: DIPHENHYDRAMINE
     Dosage: 25 MG TWICE DAILY
  11. FERROUS SULFATE. [Suspect]
     Active Substance: FERROUS SULFATE
  12. FAMOTIDINE. [Concomitant]
     Active Substance: FAMOTIDINE
  13. ROSUVASTATIN. [Concomitant]
     Active Substance: ROSUVASTATIN
  14. SERTRALINE [Concomitant]
     Active Substance: SERTRALINE HYDROCHLORIDE
  15. INSULIN GLARGINE [Concomitant]
     Active Substance: INSULIN GLARGINE
  16. PANTOPRAZOLE [Concomitant]
     Active Substance: PANTOPRAZOLE
  17. FLUTICASONE PROPIONATE. [Concomitant]
     Active Substance: FLUTICASONE PROPIONATE
     Dosage: 50 MG/ACTUATION NASAL SPRAY

REACTIONS (1)
  - Drug interaction [Recovered/Resolved]
